FAERS Safety Report 7232883-4 (Version None)
Quarter: 2011Q1

REPORT INFORMATION
  Report Type: 
  Country: None (occurrence: None)
  Receive Date: 20110119
  Receipt Date: 20110114
  Transmission Date: 20110831
  Serious: Yes (Hospitalization)
  Sender: FDA-Public Use
  Company Number: FR-PFIZER INC-2011009392

PATIENT
  Age: 89 Year
  Sex: Female

DRUGS (12)
  1. COSOPT [Concomitant]
  2. VASTAREL [Concomitant]
  3. LASIX [Suspect]
     Indication: HYPERTENSION
     Route: 048
  4. RAMIPRIL [Suspect]
     Indication: HYPERTENSION
     Dosage: UNK
     Route: 048
     Dates: end: 20101207
  5. ESCITALOPRAM [Concomitant]
  6. BETAHISTINE [Concomitant]
  7. AMLOR [Suspect]
     Indication: HYPERTENSION
     Dosage: 10 MG, 1X/DAY
     Route: 048
     Dates: start: 20101118, end: 20101207
  8. CELLUVISC [Concomitant]
  9. TEMERIT [Suspect]
     Indication: HYPERTENSION
     Dosage: 5 MG
     Route: 048
  10. REFRESH [Concomitant]
  11. VIALEBEX [Suspect]
     Indication: HYPOALBUMINAEMIA
     Dosage: UNK
     Route: 042
     Dates: start: 20101208, end: 20101209
  12. PRESERVISION SOFTGELS WITH LUTEIN [Concomitant]

REACTIONS (4)
  - CARDIAC FAILURE [None]
  - OEDEMA PERIPHERAL [None]
  - INFECTION [None]
  - VASCULAR PURPURA [None]
